FAERS Safety Report 24816100 (Version 3)
Quarter: 2025Q3

REPORT INFORMATION
  Report Type: Report from Study
  Country: CA (occurrence: CA)
  Receive Date: 20250107
  Receipt Date: 20250809
  Transmission Date: 20251021
  Serious: Yes (Hospitalization, Other)
  Sender: ALEXION PHARMACEUTICALS
  Company Number: CA-AstraZeneca-CH-00766436A

PATIENT
  Age: 76 Year
  Sex: Male

DRUGS (10)
  1. BENRALIZUMAB [Suspect]
     Active Substance: BENRALIZUMAB
     Indication: Asthma
  2. BREO ELLIPTA [Concomitant]
     Active Substance: FLUTICASONE FUROATE\VILANTEROL TRIFENATATE
  3. SPIRIVA [Concomitant]
     Active Substance: TIOTROPIUM BROMIDE MONOHYDRATE
  4. ALBUTEROL [Concomitant]
     Active Substance: ALBUTEROL
  5. ATROVENT [Concomitant]
     Active Substance: IPRATROPIUM BROMIDE
  6. IRBESARTAN [Concomitant]
     Active Substance: IRBESARTAN
  7. DILTIAZEM [Concomitant]
     Active Substance: DILTIAZEM
  8. PANTOPRAZOLE [Concomitant]
     Active Substance: PANTOPRAZOLE
  9. OMNARIS [Concomitant]
     Active Substance: CICLESONIDE
  10. CROMOLYN [Concomitant]
     Active Substance: CROMOLYN
     Route: 050

REACTIONS (2)
  - Fall [Unknown]
  - Syncope [Recovered/Resolved]

NARRATIVE: CASE EVENT DATE: 20250201
